FAERS Safety Report 10591584 (Version 9)
Quarter: 2017Q1

REPORT INFORMATION
  Report Type: Report from Study
  Country: US (occurrence: US)
  Receive Date: 20141118
  Receipt Date: 20170308
  Transmission Date: 20170428
  Serious: Yes (Death, Hospitalization)
  Sender: FDA-Public Use
  Company Number: US-ACTELION-A-NJ2014-107969

PATIENT
  Age: 5 Year
  Sex: Male

DRUGS (21)
  1. TRACLEER [Suspect]
     Active Substance: BOSENTAN
     Indication: PULMONARY ARTERIAL HYPERTENSION
     Dosage: 62.5 MG, BID
     Route: 048
     Dates: start: 20141212
  2. FUROSEMIDE. [Concomitant]
     Active Substance: FUROSEMIDE
     Dosage: 30 MG, BID
  3. GABAPENTIN. [Concomitant]
     Active Substance: GABAPENTIN
     Dosage: 3.5 ML, UNK
     Route: 048
  4. LORAZEPAM. [Concomitant]
     Active Substance: LORAZEPAM
     Dosage: 2 UNK, UNK
     Route: 048
  5. ACETAMINOPHEN. [Concomitant]
     Active Substance: ACETAMINOPHEN
     Dosage: 7 ML, Q6HRS
     Route: 048
  6. GLYCOPYRROLATE. [Concomitant]
     Active Substance: GLYCOPYRROLATE
     Dosage: 1.6 UNK, UNK
  7. TOBRAMYCIN. [Concomitant]
     Active Substance: TOBRAMYCIN
     Dosage: 5 MG, UNK
     Route: 055
  8. SILDENAFIL. [Concomitant]
     Active Substance: SILDENAFIL
     Dosage: 12 ML, Q6HRS
     Route: 048
  9. GABAPENTIN. [Concomitant]
     Active Substance: GABAPENTIN
     Dosage: 175 MG, UNK
  10. ALBUTEROL. [Concomitant]
     Active Substance: ALBUTEROL
     Dosage: UNK
  11. SILDENAFIL. [Concomitant]
     Active Substance: SILDENAFIL
     Dosage: 20 MG, UNK
  12. FUROSEMIDE. [Concomitant]
     Active Substance: FUROSEMIDE
     Dosage: 3 ML, UNK
     Route: 048
  13. ALDACTONE [Concomitant]
     Active Substance: SPIRONOLACTONE
     Dosage: 25 MG, UNK
  14. BACLOFEN. [Concomitant]
     Active Substance: BACLOFEN
     Dosage: 0.5 UNK, UNK
     Route: 048
  15. PULMICORT TURBUHALER [Concomitant]
     Active Substance: BUDESONIDE
     Dosage: 2 ML, UNK
     Route: 055
  16. DIAZEPAM. [Concomitant]
     Active Substance: DIAZEPAM
     Dosage: 5 ML, UNK
     Route: 048
  17. ONDANSETRON [Concomitant]
     Active Substance: ONDANSETRON
     Dosage: 2.5 MG, UNK
     Route: 048
  18. TRACLEER [Suspect]
     Active Substance: BOSENTAN
     Dosage: 15.6 MG, BID
     Route: 048
     Dates: start: 20140818, end: 20140831
  19. LANSOPRAZOL [Concomitant]
     Active Substance: LANSOPRAZOLE
     Dosage: 18 MG, UNK
  20. TRACLEER [Suspect]
     Active Substance: BOSENTAN
     Dosage: 31.25 MG, BID
     Route: 048
     Dates: start: 20140901, end: 20141211
  21. DIASTAT [Concomitant]
     Active Substance: DIAZEPAM
     Dosage: 10 MG, UNK
     Route: 054

REACTIONS (31)
  - Pulmonary arterial hypertension [Fatal]
  - Haemothorax [Not Recovered/Not Resolved]
  - Vomiting [Recovered/Resolved]
  - Hypoxia [Fatal]
  - Condition aggravated [Fatal]
  - Rhinovirus infection [Unknown]
  - Unresponsive to stimuli [Fatal]
  - Sinusitis [Not Recovered/Not Resolved]
  - Bradycardia [Not Recovered/Not Resolved]
  - Clostridium difficile colitis [Unknown]
  - Pneumonia aspiration [Recovering/Resolving]
  - Tracheal haemorrhage [Fatal]
  - Haemoptysis [Fatal]
  - Cardio-respiratory arrest [Not Recovered/Not Resolved]
  - Seizure [Unknown]
  - Mechanical ventilation [Not Recovered/Not Resolved]
  - Pneumothorax [Not Recovered/Not Resolved]
  - Respiratory distress [Unknown]
  - Upper respiratory tract infection [Unknown]
  - Dyspnoea [Unknown]
  - Coma [Unknown]
  - Pulmonary haemorrhage [Fatal]
  - Hypoplastic left heart syndrome [Fatal]
  - Epistaxis [Not Recovered/Not Resolved]
  - Oxygen saturation decreased [Unknown]
  - Pupil fixed [Fatal]
  - Pulse absent [Fatal]
  - Tracheitis [Unknown]
  - Viral infection [Recovered/Resolved]
  - Pyrexia [Unknown]
  - Heart rate increased [Recovered/Resolved]

NARRATIVE: CASE EVENT DATE: 20141019
